FAERS Safety Report 9522976 (Version 2)
Quarter: 2013Q3

REPORT INFORMATION
  Report Type: Spontaneous
  Country: GB (occurrence: GB)
  Receive Date: 20130913
  Receipt Date: 20130913
  Transmission Date: 20140515
  Serious: Yes (Other)
  Sender: FDA-Public Use
  Company Number: GB-ROCHE-1249238

PATIENT
  Sex: Female
  Weight: 57.07 kg

DRUGS (6)
  1. XOLAIR [Suspect]
     Indication: ASTHMA
     Route: 058
     Dates: start: 201109
  2. MOMETASONE FUROATE [Concomitant]
     Route: 045
  3. SERETIDE [Concomitant]
  4. PREDNISOLON [Concomitant]
     Route: 065
     Dates: start: 201107
  5. MONTELUKAST [Concomitant]
  6. CETIRIZINE [Concomitant]

REACTIONS (3)
  - Pregnancy on contraceptive [Unknown]
  - Exposure during pregnancy [Unknown]
  - Prolonged pregnancy [Unknown]
